FAERS Safety Report 6931966-3 (Version None)
Quarter: 2010Q3

REPORT INFORMATION
  Report Type: 
  Country: None (occurrence: None)
  Receive Date: 20100819
  Receipt Date: 20100719
  Transmission Date: 20110219
  Serious: No
  Sender: FDA-Public Use
  Company Number: US-BAYER-201018605BCC

PATIENT
  Age: 75 Year
  Sex: Female
  Weight: 55 kg

DRUGS (10)
  1. ALEVE (CAPLET) [Suspect]
     Indication: ARTHRITIS
     Dosage: TOTAL DAILY DOSE: 220 MG  UNIT DOSE: 220 MG
     Route: 048
     Dates: start: 20100501
  2. ATENOLOL [Concomitant]
  3. PAXIL [Concomitant]
  4. CLARITIN [Concomitant]
  5. ALLERGY PILL [Concomitant]
  6. FLUID PILL [Concomitant]
  7. NATURAL CALCIUM WITH VITAMIN D [Concomitant]
     Dosage: AS USED: 1200 MG  UNIT DOSE: 600 MG
  8. VITAMIN B-12 [Concomitant]
  9. ZOCOR [Concomitant]
  10. ASPIRIN [Concomitant]

REACTIONS (1)
  - ABDOMINAL PAIN UPPER [None]
